FAERS Safety Report 7326391-X (Version None)
Quarter: 2011Q1

REPORT INFORMATION
  Report Type: 
  Country: None (occurrence: None)
  Receive Date: 20110223
  Receipt Date: 20110207
  Transmission Date: 20110831
  Serious: Yes (Other)
  Sender: FDA-Public Use
  Company Number: JPI-P-013816

PATIENT
  Age: 50 Year
  Sex: Female
  Weight: 102.5129 kg

DRUGS (2)
  1. METOPROLOL TARTRATE [Concomitant]
  2. XYREM [Suspect]
     Indication: CATAPLEXY
     Dosage: ORAL; 4.5 GM FIRST DOSE/2.25 GM SECOND DOSE, ORAL
     Route: 048
     Dates: start: 20070826

REACTIONS (1)
  - BILE DUCT STONE [None]
